FAERS Safety Report 5062671-9 (Version None)
Quarter: 2006Q3

REPORT INFORMATION
  Report Type: 
  Country: None (occurrence: None)
  Receive Date: 20060724
  Receipt Date: 20060724
  Transmission Date: 20061208
  Serious: No
  Sender: FDA-Public Use
  Company Number: None

PATIENT
  Sex: Male

DRUGS (1)
  1. HUMULIN N [Suspect]
     Indication: HYPERGLYCAEMIA
     Dosage: 30 UNITS Q8H SQ
     Route: 058
     Dates: start: 20060609, end: 20060610

REACTIONS (1)
  - HYPOGLYCAEMIA [None]
